FAERS Safety Report 18158332 (Version 2)
Quarter: 2020Q4

REPORT INFORMATION
  Report Type: Spontaneous
  Country: US (occurrence: US)
  Receive Date: 20200817
  Receipt Date: 20201016
  Transmission Date: 20210113
  Serious: Yes (Other)
  Sender: FDA-Public Use
  Company Number: US-GILEAD-2020-0489760

PATIENT
  Age: 61 Year
  Sex: Male
  Weight: 120.18 kg

DRUGS (53)
  1. FERROUS SULFATE. [Concomitant]
     Active Substance: FERROUS SULFATE
  2. JANUVIA [Concomitant]
     Active Substance: SITAGLIPTIN PHOSPHATE
  3. LOSARTAN. [Concomitant]
     Active Substance: LOSARTAN
  4. METFORMIN [Concomitant]
     Active Substance: METFORMIN HYDROCHLORIDE
  5. SIMVASTATIN. [Concomitant]
     Active Substance: SIMVASTATIN
  6. TERBINAFINE. [Concomitant]
     Active Substance: TERBINAFINE
  7. TRESIBA [Concomitant]
     Active Substance: INSULIN DEGLUDEC
  8. ATRIPLA [Suspect]
     Active Substance: EFAVIRENZ\EMTRICITABINE\TENOFOVIR DISOPROXIL FUMARATE
     Indication: HIV INFECTION
     Dosage: UNK
     Route: 048
     Dates: start: 2007, end: 20140224
  9. GENVOYA [Concomitant]
     Active Substance: COBICISTAT\ELVITEGRAVIR\EMTRICITABINE\TENOFOVIR ALAFENAMIDE FUMARATE
  10. CEPHALEXINE [Concomitant]
     Active Substance: CEPHALEXIN
  11. FLUCONAZOLE. [Concomitant]
     Active Substance: FLUCONAZOLE
  12. GLIPIZIDE. [Concomitant]
     Active Substance: GLIPIZIDE
  13. HUMALOG [Concomitant]
     Active Substance: INSULIN LISPRO
  14. LANTUS [Concomitant]
     Active Substance: INSULIN GLARGINE
  15. MELOXICAM. [Concomitant]
     Active Substance: MELOXICAM
  16. AMOXICILLIN + CLAVULANIC ACID [Concomitant]
     Active Substance: AMOXICILLIN\CLAVULANIC ACID
  17. CIPROFLOXACIN. [Concomitant]
     Active Substance: CIPROFLOXACIN
  18. CLOBETASOL [Concomitant]
     Active Substance: CLOBETASOL
  19. DOXYCYCLINE HYCLATE. [Concomitant]
     Active Substance: DOXYCYCLINE HYCLATE
  20. ECONAZOLE NITRATE. [Concomitant]
     Active Substance: ECONAZOLE NITRATE
  21. HYDROCODONE/ACETAMINOPHEN [Concomitant]
     Active Substance: ACETAMINOPHEN\HYDROCODONE
  22. LISINOPRIL. [Concomitant]
     Active Substance: LISINOPRIL
  23. OMEPRAZOLE. [Concomitant]
     Active Substance: OMEPRAZOLE
  24. CHLORHEXIDINE [Concomitant]
     Active Substance: CHLORHEXIDINE
  25. DICYCLOMINE [DICYCLOVERINE HYDROCHLORIDE] [Concomitant]
  26. FINASTERIDE. [Concomitant]
     Active Substance: FINASTERIDE
  27. NOVOLOG [Concomitant]
     Active Substance: INSULIN ASPART
  28. ONDANSETRON [Concomitant]
     Active Substance: ONDANSETRON
  29. AFLURIA NOS [Concomitant]
     Active Substance: INFLUENZA VIRUS VACCINE TRIVALENT TYPE A+B AFLURIA
  30. CLARITHROMYCIN. [Concomitant]
     Active Substance: CLARITHROMYCIN
  31. DIFLUNISAL. [Concomitant]
     Active Substance: DIFLUNISAL
  32. OXYBUTYNIN. [Concomitant]
     Active Substance: OXYBUTYNIN CHLORIDE
  33. SERTRALINE [Concomitant]
     Active Substance: SERTRALINE HYDROCHLORIDE
  34. TESTIM [Concomitant]
     Active Substance: TESTOSTERONE
  35. ANDROGEL [Concomitant]
     Active Substance: TESTOSTERONE
  36. CELECOXIB. [Concomitant]
     Active Substance: CELECOXIB
  37. METHYLPREDNISOLONE. [Concomitant]
     Active Substance: METHYLPREDNISOLONE
  38. NAPROXEN. [Concomitant]
     Active Substance: NAPROXEN
  39. OXYCODONE [Concomitant]
     Active Substance: OXYCODONE
  40. TESTOSTERONE. [Concomitant]
     Active Substance: TESTOSTERONE
  41. GABAPENTIN. [Concomitant]
     Active Substance: GABAPENTIN
  42. LYRICA [Concomitant]
     Active Substance: PREGABALIN
  43. OZEMPIC [Concomitant]
     Active Substance: SEMAGLUTIDE
  44. PENICILLIN B [Concomitant]
     Active Substance: PHENETICILLIN
  45. TRUVADA [Suspect]
     Active Substance: EMTRICITABINE\TENOFOVIR DISOPROXIL FUMARATE
     Indication: HIV INFECTION
     Dosage: UNK
     Route: 048
     Dates: start: 2005
  46. ATORVASTATIN CALCIUM. [Concomitant]
     Active Substance: ATORVASTATIN CALCIUM
  47. AZELASTINE. [Concomitant]
     Active Substance: AZELASTINE HYDROCHLORIDE
  48. CYCLOBENZAPRINE. [Concomitant]
     Active Substance: CYCLOBENZAPRINE
  49. LEVOFLOXACIN. [Concomitant]
     Active Substance: LEVOFLOXACIN
  50. LORAZEPAM. [Concomitant]
     Active Substance: LORAZEPAM
  51. SULFAMETHOXAZOLE [Concomitant]
     Active Substance: SULFAMETHOXAZOLE
  52. TAMSULOSIN [Concomitant]
     Active Substance: TAMSULOSIN
  53. VICTOZA [Concomitant]
     Active Substance: LIRAGLUTIDE

REACTIONS (7)
  - Emotional distress [Unknown]
  - Anxiety [Unknown]
  - Pain [Unknown]
  - Bone density decreased [Not Recovered/Not Resolved]
  - Chronic kidney disease [Unknown]
  - Anhedonia [Unknown]
  - Fracture [Unknown]

NARRATIVE: CASE EVENT DATE: 20160831
